FAERS Safety Report 24317726 (Version 2)
Quarter: 2025Q2

REPORT INFORMATION
  Report Type: Spontaneous
  Country: US (occurrence: US)
  Receive Date: 20240913
  Receipt Date: 20250516
  Transmission Date: 20250716
  Serious: No
  Sender: PFIZER
  Company Number: US-PFIZER INC-PV202400120256

PATIENT
  Age: 66 Year
  Sex: Female

DRUGS (1)
  1. XELJANZ [Suspect]
     Active Substance: TOFACITINIB CITRATE
     Dosage: 10 MG, 2X/DAY

REACTIONS (3)
  - Dysphonia [Not Recovered/Not Resolved]
  - Illness [Not Recovered/Not Resolved]
  - Acne [Unknown]

NARRATIVE: CASE EVENT DATE: 20240101
